FAERS Safety Report 6872392-5 (Version None)
Quarter: 2010Q3

REPORT INFORMATION
  Report Type: 
  Country: None (occurrence: None)
  Receive Date: 20100723
  Receipt Date: 20100713
  Transmission Date: 20110219
  Serious: Yes (Hospitalization, Other)
  Sender: FDA-Public Use
  Company Number: US-ABBOTT-10P-163-0657272-00

PATIENT
  Sex: Female
  Weight: 96.248 kg

DRUGS (11)
  1. HUMIRA [Suspect]
     Indication: PSORIASIS
     Route: 058
     Dates: start: 20100701
  2. HUMIRA [Suspect]
     Route: 058
     Dates: end: 20100607
  3. HUMIRA [Suspect]
     Route: 058
     Dates: start: 20060101, end: 20070501
  4. TRIAMTERENE [Concomitant]
     Indication: PRODUCT USED FOR UNKNOWN INDICATION
  5. METHOTREXATE [Concomitant]
     Indication: PSORIASIS
  6. ESTRADIOL [Concomitant]
     Indication: PRODUCT USED FOR UNKNOWN INDICATION
  7. ALPRAZOLAM [Concomitant]
     Indication: URTICARIA
  8. ALPRAZOLAM [Concomitant]
     Indication: PRURITUS
  9. ALPRAZOLAM [Concomitant]
     Indication: ANXIETY
  10. LEXAPRO [Concomitant]
     Indication: DEPRESSION
  11. WELLBUTRIN [Concomitant]
     Indication: DEPRESSION
     Dates: start: 19950101

REACTIONS (14)
  - CHILLS [None]
  - DEVICE BREAKAGE [None]
  - DEVICE FAILURE [None]
  - FALL [None]
  - HYPERTENSION [None]
  - INCISION SITE ABSCESS [None]
  - INCISION SITE COMPLICATION [None]
  - INCISION SITE INFECTION [None]
  - MENISCUS LESION [None]
  - NERVE COMPRESSION [None]
  - PAIN [None]
  - PYREXIA [None]
  - STAPHYLOCOCCAL INFECTION [None]
  - SYNOVIAL CYST [None]
